FAERS Safety Report 9108603 (Version 1)
Quarter: 2013Q1

REPORT INFORMATION
  Report Type: Spontaneous
  Country: US (occurrence: US)
  Receive Date: 20130222
  Receipt Date: 20130222
  Transmission Date: 20140127
  Serious: Yes (Hospitalization)
  Sender: FDA-Public Use
  Company Number: US-BAYER-2013-021030

PATIENT
  Age: 32 Year
  Sex: Female

DRUGS (9)
  1. OCELLA [Suspect]
     Dosage: UNK
     Dates: start: 20100616, end: 20120608
  2. FLUCONAZOLE [Concomitant]
  3. CIPROFLOXACIN [Concomitant]
  4. AZITHROMYCIN [Concomitant]
  5. ADVAIR [Concomitant]
  6. PROAIR HFA [Concomitant]
  7. MULTIVITAMINS W/FLUORIDE [Concomitant]
  8. OMEGA-3 FATTY ACIDS [Concomitant]
  9. CALCIUM CITRATE [Concomitant]

REACTIONS (2)
  - Pulmonary embolism [None]
  - Dyspnoea [None]
